FAERS Safety Report 7803775-4 (Version None)
Quarter: 2011Q4

REPORT INFORMATION
  Report Type: 
  Country: None (occurrence: None)
  Receive Date: 20111010
  Receipt Date: 20111004
  Transmission Date: 20120403
  Serious: No
  Sender: FDA-Public Use
  Company Number: US-PFIZER INC-2011237578

PATIENT
  Sex: Male
  Weight: 16 kg

DRUGS (2)
  1. MULTI-VITAMINS [Concomitant]
  2. GENOTROPIN [Suspect]
     Dosage: 0.7 MG, 1X/DAY
     Route: 058

REACTIONS (1)
  - MUSCULOSKELETAL STIFFNESS [None]
